FAERS Safety Report 6981020-X (Version None)
Quarter: 2010Q3

REPORT INFORMATION
  Report Type: 
  Country: None (occurrence: None)
  Receive Date: 20100914
  Receipt Date: 20100903
  Transmission Date: 20110219
  Serious: Yes (Other)
  Sender: FDA-Public Use
  Company Number: GXKR2010US10028

PATIENT
  Age: 8 Year
  Sex: Female

DRUGS (6)
  1. PREDNISONE (NGX) [Suspect]
     Indication: DERMATOMYOSITIS
     Dosage: 20 MG, BID
     Route: 048
  2. PREDNISONE (NGX) [Suspect]
     Dosage: 20 MG, AT 1 YEAR
     Route: 048
  3. PREDNISONE (NGX) [Suspect]
     Dosage: 7.5 MG, Q48H; AT 21 MONTHS
     Route: 048
  4. PREDNISONE (NGX) [Suspect]
     Dosage: TAPERED TO 5MG, Q48H; AT 22 MONTHS
     Route: 048
  5. HYDROXYCHLOROQUINE [Concomitant]
     Indication: DERMATOMYOSITIS
     Dosage: 5 MG/KG/D (100 MG)
  6. METHOTREXATE [Concomitant]
     Indication: DERMATOMYOSITIS
     Dosage: 15 MG WEEKLY (0.6 MG/KG)
     Route: 058

REACTIONS (7)
  - BONE ELECTROSTIMULATION THERAPY [None]
  - MUSCULOSKELETAL DISORDER [None]
  - OSTEONECROSIS [None]
  - PAIN IN EXTREMITY [None]
  - TENDERNESS [None]
  - WALKING AID USER [None]
  - WEIGHT BEARING DIFFICULTY [None]
